FAERS Safety Report 7014222-7 (Version None)
Quarter: 2010Q3

REPORT INFORMATION
  Report Type: 
  Country: None (occurrence: None)
  Receive Date: 20100927
  Receipt Date: 20100915
  Transmission Date: 20110219
  Serious: Yes (Other)
  Sender: FDA-Public Use
  Company Number: US-JNJFOC-20100905247

PATIENT
  Age: 36 Year
  Sex: Female

DRUGS (6)
  1. PREZISTA [Suspect]
     Indication: HIV INFECTION
     Route: 065
  2. INTELLENCE [Suspect]
     Indication: HIV INFECTION
     Route: 065
  3. TRUVADA [Concomitant]
     Indication: HIV INFECTION
     Route: 065
  4. NORVIR [Concomitant]
     Indication: HIV INFECTION
     Route: 065
  5. AZIDOTHYMIDINE [Concomitant]
     Indication: HIV INFECTION
     Route: 065
  6. AZT [Concomitant]
     Indication: HIV INFECTION
     Route: 065

REACTIONS (3)
  - DRUG EXPOSURE DURING PREGNANCY [None]
  - PREGNANCY [None]
  - PREMATURE LABOUR [None]
